FAERS Safety Report 16998731 (Version 1)
Quarter: 2019Q4

REPORT INFORMATION
  Report Type: Spontaneous
  Country: NL (occurrence: NL)
  Receive Date: 20191106
  Receipt Date: 20191106
  Transmission Date: 20200122
  Serious: Yes (Hospitalization)
  Sender: FDA-Public Use
  Company Number: NL-TEVA-2019-NL-1132146

PATIENT
  Age: 23 Year
  Sex: Male

DRUGS (7)
  1. DIAZEPAM. [Suspect]
     Active Substance: DIAZEPAM
     Dosage: 9 MILLIGRAM DAILY;
     Route: 065
  2. PREGABALIN. [Concomitant]
     Active Substance: PREGABALIN
     Dosage: 375 MILLIGRAM DAILY; 125MG, THREE TIMES A DAY
     Route: 065
  3. PHENIBUT [Suspect]
     Active Substance: DIETARY SUPPLEMENT
     Indication: EUPHORIC MOOD
  4. DIAZEPAM. [Suspect]
     Active Substance: DIAZEPAM
     Indication: ANXIETY
     Dosage: 80 MILLIGRAM DAILY;
     Route: 065
  5. DIAZEPAM. [Suspect]
     Active Substance: DIAZEPAM
     Dosage: 10 MILLIGRAM DAILY; TAPERED ABOUT -20% PER DAY
     Route: 065
  6. PHENIBUT [Suspect]
     Active Substance: DIETARY SUPPLEMENT
     Indication: INSOMNIA
     Dosage: 11 TO 12 G 3 TIMES A DAY (WITH A MAXIMUM OF 34.5 G PER DAY)
     Route: 065
  7. PREGABALIN. [Concomitant]
     Active Substance: PREGABALIN
     Indication: ANXIETY
     Dosage: 225 MILLIGRAM DAILY;
     Route: 065

REACTIONS (22)
  - Restlessness [Recovered/Resolved]
  - Depressed mood [Recovered/Resolved]
  - Abnormal dreams [Recovered/Resolved]
  - Drug dependence [Recovered/Resolved]
  - Tension [Recovered/Resolved]
  - Drug dependence [Recovering/Resolving]
  - Depersonalisation/derealisation disorder [Recovered/Resolved]
  - Decreased appetite [Recovered/Resolved]
  - Drug abuse [Unknown]
  - Anxiety [Recovered/Resolved]
  - Delusion [Recovered/Resolved]
  - Irritability [Recovered/Resolved]
  - Headache [Recovered/Resolved]
  - Body temperature fluctuation [Recovered/Resolved]
  - Trismus [Recovered/Resolved]
  - Fear [Recovered/Resolved]
  - Psychomotor hyperactivity [Recovered/Resolved]
  - Influenza like illness [Recovered/Resolved]
  - Dysphoria [Recovered/Resolved]
  - Insomnia [Recovered/Resolved]
  - Myalgia [Recovered/Resolved]
  - Withdrawal syndrome [Recovered/Resolved]
